FAERS Safety Report 14160138 (Version 1)
Quarter: 2017Q4

REPORT INFORMATION
  Report Type: Spontaneous
  Country: ES (occurrence: ES)
  Receive Date: 20171106
  Receipt Date: 20171106
  Transmission Date: 20180321
  Serious: Yes (Other)
  Sender: FDA-Public Use
  Company Number: ES-SUN PHARMACEUTICAL INDUSTRIES LTD-2017R1-143424

PATIENT
  Age: 62 Year
  Sex: Female

DRUGS (1)
  1. BUPRENORPHINE. [Suspect]
     Active Substance: BUPRENORPHINE
     Indication: BACK PAIN
     Dosage: 30 MG EVERY 72 HOURS
     Route: 061

REACTIONS (2)
  - Dysphagia [Recovering/Resolving]
  - Gastrointestinal obstruction [Recovering/Resolving]
